FAERS Safety Report 10048502 (Version 2)
Quarter: 2014Q2

REPORT INFORMATION
  Report Type: Spontaneous
  Country: FR (occurrence: FR)
  Receive Date: 20140331
  Receipt Date: 20140414
  Transmission Date: 20141212
  Serious: Yes (Death, Other)
  Sender: FDA-Public Use
  Company Number: FR-BRISTOL-MYERS SQUIBB COMPANY-20547253

PATIENT
  Age: 29 Year
  Sex: Female

DRUGS (8)
  1. ABILIFY INJECTION 7.5 MG/ML [Suspect]
     Route: 030
     Dates: start: 20140211
  2. RISPERDAL [Suspect]
     Indication: ANXIETY
     Dosage: INCREASED TO 8MG/DAY
     Route: 048
     Dates: start: 20140121, end: 20140211
  3. TERCIAN [Suspect]
     Indication: AGITATION
     Dosage: 21JAN-UNTIL 9FEB14?9FEB14-50MG INJ
     Dates: start: 20140121
  4. TERCIAN [Suspect]
     Indication: ANXIETY
     Dosage: 21JAN-UNTIL 9FEB14?9FEB14-50MG INJ
     Dates: start: 20140121
  5. LYSANXIA [Suspect]
     Route: 048
     Dates: start: 20140206, end: 20140211
  6. VALIUM [Suspect]
     Indication: ANXIETY
     Route: 048
     Dates: start: 20140121
  7. PARKINANE [Concomitant]
     Route: 048
     Dates: start: 20140205, end: 20140211
  8. MOVICOL [Concomitant]

REACTIONS (5)
  - Sudden death [Fatal]
  - Cardio-respiratory arrest [Unknown]
  - Aspiration [Unknown]
  - Tracheal obstruction [Unknown]
  - Dysphagia [Unknown]
